FAERS Safety Report 6226756-3 (Version None)
Quarter: 2009Q2

REPORT INFORMATION
  Report Type: 
  Country: None (occurrence: None)
  Receive Date: 20090612
  Receipt Date: 20090518
  Transmission Date: 20091009
  Serious: No
  Sender: FDA-Public Use
  Company Number: US-ABBOTT-09P-163-0575237-00

PATIENT
  Sex: Female
  Weight: 74.456 kg

DRUGS (5)
  1. HUMIRA [Suspect]
     Indication: RHEUMATOID ARTHRITIS
     Dosage: EVERY TWO WEEKS
     Route: 058
     Dates: end: 20090501
  2. PREDNISONE [Concomitant]
     Indication: DRUG USE FOR UNKNOWN INDICATION
     Route: 048
  3. RANITIDINE [Concomitant]
     Indication: DRUG USE FOR UNKNOWN INDICATION
     Dosage: TWO TIMES DAILY
     Route: 048
  4. FOSAMAX [Concomitant]
     Indication: DRUG USE FOR UNKNOWN INDICATION
     Dosage: ONCE WEEKLY
  5. IBUPROFEN [Concomitant]
     Indication: PAIN
     Dosage: TAKING MORE OFTEN NOT ABOUT 3 TO 4 PILLS PER DAY

REACTIONS (5)
  - ARTHRITIS [None]
  - COUGH [None]
  - DRUG INEFFECTIVE [None]
  - MOBILITY DECREASED [None]
  - PAIN [None]
